FAERS Safety Report 18942682 (Version 1)
Quarter: 2021Q1

REPORT INFORMATION
  Report Type: Spontaneous
  Country: KR (occurrence: KR)
  Receive Date: 20210225
  Receipt Date: 20210225
  Transmission Date: 20210420
  Serious: Yes (Death, Other)
  Sender: FDA-Public Use
  Company Number: KR-GILEAD-2021-0518641

PATIENT
  Sex: Female
  Weight: 55 kg

DRUGS (48)
  1. CODEINE [Concomitant]
     Active Substance: CODEINE
  2. MUCOSTA [Concomitant]
     Active Substance: REBAMIPIDE
  3. SODIUM BICARBONATE. [Concomitant]
     Active Substance: SODIUM BICARBONATE
  4. NOVORAPID [Concomitant]
     Active Substance: INSULIN ASPART
  5. HEPARIN [Concomitant]
     Active Substance: HEPARIN SODIUM
  6. ALBUMIN [Concomitant]
     Active Substance: ALBUMIN HUMAN
  7. FURIX [CEFUROXIME] [Concomitant]
     Active Substance: CEFUROXIME
  8. FENTANYL. [Concomitant]
     Active Substance: FENTANYL
  9. KETOCONAZOLE. [Concomitant]
     Active Substance: KETOCONAZOLE
  10. SUCCINYL CHOLINE [Concomitant]
     Active Substance: SUCCINYLCHOLINE
  11. BABY ASPIRIN [Concomitant]
     Active Substance: ASPIRIN
  12. TRESIBA [Concomitant]
     Active Substance: INSULIN DEGLUDEC
  13. POTASSIUM [Concomitant]
     Active Substance: POTASSIUM
  14. VEKLURY [Suspect]
     Active Substance: REMDESIVIR
     Indication: COVID-19
     Dosage: 200 MG, ONCE
     Route: 042
     Dates: start: 20210127, end: 20210127
  15. NORMAL SALINE [Concomitant]
     Active Substance: SODIUM CHLORIDE
  16. MAXIPIME [Concomitant]
     Active Substance: CEFEPIME HYDROCHLORIDE
  17. PLASMA SOLUTION A [Concomitant]
  18. TRAVOGEN [Concomitant]
     Active Substance: ISOCONAZOLE NITRATE
  19. KLENZO [Concomitant]
  20. NEXIUM I.V. [Concomitant]
     Active Substance: ESOMEPRAZOLE SODIUM
  21. SYNATURA [Concomitant]
  22. MOTILITONE [Concomitant]
     Active Substance: HERBALS
  23. LEVOTUSS [Concomitant]
     Active Substance: LEVODROPROPIZINE
  24. PROMAC D [Concomitant]
     Active Substance: POLAPREZINC
  25. ULTIAN [Concomitant]
  26. DICKNOL [Concomitant]
     Active Substance: DICLOFENAC DEANOL
  27. CNOXANE [Concomitant]
  28. LASIX [Concomitant]
     Active Substance: FUROSEMIDE
  29. VEKLURY [Suspect]
     Active Substance: REMDESIVIR
     Dosage: 100 MG, QD
     Route: 042
     Dates: start: 20210128, end: 20210131
  30. MAXIBUPEN [Concomitant]
  31. MEDILAC DS [Concomitant]
  32. TAMIPOOL [Concomitant]
     Active Substance: VITAMINS
  33. DIFUCO [Concomitant]
  34. ETOMIDATE. [Concomitant]
     Active Substance: ETOMIDATE
  35. NORPIN A [Concomitant]
  36. NOLTEC [Concomitant]
  37. DEXAMETHASONE. [Concomitant]
     Active Substance: DEXAMETHASONE
  38. EPINEPHRINE. [Concomitant]
     Active Substance: EPINEPHRINE
  39. HUMALOG [Concomitant]
     Active Substance: INSULIN LISPRO
  40. CECLONAC [Concomitant]
  41. DEPAS [DICLOFENAC;DICYCLOVERINE HYDROCHLORIDE] [Concomitant]
  42. VASOPRESSIN. [Concomitant]
     Active Substance: VASOPRESSIN
  43. CALDOLOR [Concomitant]
     Active Substance: IBUPROFEN
  44. TRESIBA [Concomitant]
     Active Substance: INSULIN DEGLUDEC
  45. TAPOCIN [Concomitant]
  46. MUTERAN [Concomitant]
     Active Substance: ACETYLCYSTEINE
  47. ANAPROX [Concomitant]
     Active Substance: NAPROXEN SODIUM
  48. FUTHAN [Concomitant]
     Active Substance: NAFAMOSTAT MESYLATE

REACTIONS (3)
  - Multiple organ dysfunction syndrome [Fatal]
  - Cardiac arrest [Not Recovered/Not Resolved]
  - Severe acute respiratory syndrome [Fatal]

NARRATIVE: CASE EVENT DATE: 20210222
